FAERS Safety Report 23223222 (Version 1)
Quarter: 2023Q4

REPORT INFORMATION
  Report Type: Spontaneous
  Country: IT (occurrence: IT)
  Receive Date: 20231123
  Receipt Date: 20231123
  Transmission Date: 20240110
  Serious: Yes (Other)
  Sender: FDA-Public Use
  Company Number: IT-SA-SAC20230113000048

PATIENT

DRUGS (1)
  1. ALFUZOSIN [Suspect]
     Active Substance: ALFUZOSIN
     Dosage: 1 DOSAGE FORM,  (MITTOVAL, PROLONGED-RELEASE TABLET )
     Route: 048

REACTIONS (3)
  - Syncope [Unknown]
  - Hepatomegaly [Unknown]
  - Hepatic pain [Unknown]
